FAERS Safety Report 23026416 (Version 2)
Quarter: 2023Q4

REPORT INFORMATION
  Report Type: Spontaneous
  Country: AU (occurrence: AU)
  Receive Date: 20231004
  Receipt Date: 20231030
  Transmission Date: 20240109
  Serious: Yes (Other)
  Sender: FDA-Public Use
  Company Number: AU-002147023-NVSC2023AU209827

PATIENT
  Age: 60 Year
  Sex: Female

DRUGS (1)
  1. ASCIMINIB [Suspect]
     Active Substance: ASCIMINIB
     Indication: Chronic myeloid leukaemia
     Dosage: 200 MG, BID
     Route: 065
     Dates: start: 20230131

REACTIONS (2)
  - Acute graft versus host disease [Unknown]
  - Fatigue [Unknown]

NARRATIVE: CASE EVENT DATE: 20230131
